FAERS Safety Report 5974276-3 (Version None)
Quarter: 2008Q4

REPORT INFORMATION
  Report Type: 
  Country: None (occurrence: None)
  Receive Date: 20081128
  Receipt Date: 20081124
  Transmission Date: 20090506
  Serious: Yes (Hospitalization)
  Sender: FDA-Public Use
  Company Number: TPA2008A02058

PATIENT
  Sex: Female

DRUGS (2)
  1. PIOGLITAZONE HCL [Suspect]
     Indication: CEREBROVASCULAR ACCIDENT PROPHYLAXIS
     Dosage: UNK, 1 IN 1 D PER ORAL
     Route: 048
  2. PIOGLITAZONE HCL [Suspect]
     Indication: ISCHAEMIC HEART DISEASE PROPHYLAXIS
     Dosage: UNK, 1 IN 1 D PER ORAL
     Route: 048

REACTIONS (5)
  - FALL [None]
  - HEADACHE [None]
  - NAUSEA [None]
  - SKULL FRACTURE [None]
  - VERTIGO [None]
